FAERS Safety Report 5387224-4 (Version None)
Quarter: 2007Q3

REPORT INFORMATION
  Report Type: 
  Country: None (occurrence: None)
  Receive Date: 20070716
  Receipt Date: 20070712
  Transmission Date: 20080115
  Serious: Yes (Other)
  Sender: FDA-Public Use
  Company Number: GB-SP-2007-02509

PATIENT
  Sex: Male

DRUGS (1)
  1. IMMUCYST [Suspect]
     Route: 043

REACTIONS (2)
  - DEAFNESS [None]
  - NEOPLASM [None]
